FAERS Safety Report 17533784 (Version 1)
Quarter: 2020Q1

REPORT INFORMATION
  Report Type: Spontaneous
  Country: SE (occurrence: SE)
  Receive Date: 20200312
  Receipt Date: 20200312
  Transmission Date: 20200409
  Serious: Yes (Life-Threatening, Hospitalization, Disabling, Other)
  Sender: FDA-Public Use
  Company Number: SE-009507513-2003SWE000790

PATIENT
  Age: 47 Year
  Sex: Female

DRUGS (1)
  1. NEXPLANON [Suspect]
     Active Substance: ETONOGESTREL
     Indication: CONTRACEPTION
     Dosage: UNK
     Route: 058
     Dates: start: 20180509, end: 20190903

REACTIONS (1)
  - Keratoacanthoma [Recovered/Resolved with Sequelae]

NARRATIVE: CASE EVENT DATE: 2018
